FAERS Safety Report 9532088 (Version 1)
Quarter: 2013Q1

REPORT INFORMATION
  Report Type: Spontaneous
  Country: US (occurrence: None)
  Receive Date: 20130320
  Receipt Date: 20130320
  Transmission Date: 20140127
  Serious: No
  Sender: FDA-Public Use
  Company Number: EUS-2013-00025

PATIENT
  Sex: 0

DRUGS (4)
  1. ASPARAGINASE [Suspect]
     Indication: ANGIOCENTRIC LYMPHOMA
     Dosage: ON DAYS 1-7 (1 IN 1 DAYS), INTRAVENOUS DRIP
     Route: 041
  2. ASPARAGINASE [Suspect]
     Dosage: ON DAYS 1-7 (1 IN 1 DAYS), INTRAVENOUS DRIP
     Route: 041
  3. GEMCITABINE [Concomitant]
  4. OXALIPLATIN [Concomitant]

REACTIONS (1)
  - Hyperglycaemia [None]
